FAERS Safety Report 7998305-0 (Version None)
Quarter: 2011Q4

REPORT INFORMATION
  Report Type: 
  Country: None (occurrence: None)
  Receive Date: 20111221
  Receipt Date: 20110628
  Transmission Date: 20120403
  Serious: No
  Sender: FDA-Public Use
  Company Number: US-GLAXOSMITHKLINE-A0933449A

PATIENT
  Age: 60 Year
  Sex: Male

DRUGS (6)
  1. PLAVIX [Concomitant]
  2. METOPROLOL TARTRATE [Concomitant]
  3. LOVAZA [Suspect]
     Route: 048
     Dates: start: 20110101
  4. LISINOPRIL [Concomitant]
  5. VYTORIN [Concomitant]
  6. ASPIRIN [Concomitant]

REACTIONS (2)
  - PRODUCT QUALITY ISSUE [None]
  - VOMITING [None]
